FAERS Safety Report 21711164 (Version 4)
Quarter: 2023Q1

REPORT INFORMATION
  Report Type: Spontaneous
  Country: JP (occurrence: JP)
  Receive Date: 20221212
  Receipt Date: 20230210
  Transmission Date: 20230418
  Serious: Yes (Hospitalization, Other)
  Sender: FDA-Public Use
  Company Number: JP-ONO-2022JP029295

PATIENT
  Age: 8 Decade
  Sex: Male

DRUGS (3)
  1. OPDIVO [Suspect]
     Active Substance: NIVOLUMAB
     Indication: Malignant neoplasm of unknown primary site
     Dosage: 240 MG, Q2W
     Route: 041
     Dates: start: 202207, end: 202210
  2. RAMUCIRUMAB [Suspect]
     Active Substance: RAMUCIRUMAB
     Indication: Malignant neoplasm of unknown primary site
     Dates: start: 202212, end: 202301
  3. PACLITAXEL [Concomitant]
     Active Substance: PACLITAXEL
     Indication: Malignant neoplasm of unknown primary site
     Dates: start: 202212, end: 202301

REACTIONS (4)
  - Malignant neoplasm progression [Unknown]
  - Drug-induced liver injury [Recovered/Resolved]
  - Stenosis [Unknown]
  - Intestinal perforation [Recovering/Resolving]
